FAERS Safety Report 26127791 (Version 1)
Quarter: 2025Q4

REPORT INFORMATION
  Report Type: Other
  Country: GB (occurrence: GB)
  Receive Date: 20251206
  Receipt Date: 20251206
  Transmission Date: 20260117
  Serious: Yes (Death, Life-Threatening, Other)
  Sender: GLENMARK
  Company Number: None

PATIENT
  Age: 61 Year
  Sex: Male
  Weight: 137 kg

DRUGS (1)
  1. DAPAGLIFLOZIN [Suspect]
     Active Substance: DAPAGLIFLOZIN
     Indication: Diabetes mellitus
     Dosage: 10 MILLIGRAM
     Route: 065
     Dates: start: 20180312

REACTIONS (10)
  - Sepsis [Fatal]
  - Fournier^s gangrene [Not Recovered/Not Resolved]
  - Scrotal cellulitis [Not Recovered/Not Resolved]
  - Cholelithiasis [Unknown]
  - Perineal cellulitis [Unknown]
  - Scrotal abscess [Not Recovered/Not Resolved]
  - Cardiac arrest [Not Recovered/Not Resolved]
  - Subcutaneous emphysema [Unknown]
  - Abdominal hernia [Unknown]
  - Scrotal oedema [Unknown]

NARRATIVE: CASE EVENT DATE: 20251029
